FAERS Safety Report 8496837 (Version 2)
Quarter: 2012Q4

REPORT INFORMATION
  Report Type: 
  Country: IT (occurrence: IT)
  Receive Date: 20120406
  Receipt Date: 20121102
  Transmission Date: 20130627
  Serious: Yes (Hospitalization)
  Sender: FDA-Public Use
  Company Number: IT-AMGEN-ITASP2012020704

PATIENT
  Age: 48 Year
  Sex: Male

DRUGS (6)
  1. NPLATE [Suspect]
     Indication: IDIOPATHIC THROMBOCYTOPENIC PURPURA
     Dosage: 250 mug, qwk
     Route: 058
     Dates: start: 20110101, end: 20120207
  2. ABILIFY [Concomitant]
     Dosage: 10 mg, UNK
     Route: 048
  3. RISPERDAL [Concomitant]
     Dosage: 3 mg, UNK
  4. NOZINAN                            /00038601/ [Concomitant]
     Dosage: 25 mg, UNK
  5. VALDORM                            /00246102/ [Concomitant]
     Dosage: 30 mg, UNK
  6. DELORAZEPAM [Concomitant]

REACTIONS (1)
  - Pulmonary embolism [Recovered/Resolved with Sequelae]
